FAERS Safety Report 24342641 (Version 3)
Quarter: 2024Q4

REPORT INFORMATION
  Report Type: Report from Study
  Country: TR (occurrence: TR)
  Receive Date: 20240920
  Receipt Date: 20241030
  Transmission Date: 20250115
  Serious: Yes (Hospitalization, Other)
  Sender: ULTRAGENYX PHARMACEUTICAL
  Company Number: TR-ULTRAGENYX PHARMACEUTICAL INC.-TR-UGX-23-01546

PATIENT
  Age: 35 Year
  Sex: Female
  Weight: 73 kg

DRUGS (7)
  1. TRIHEPTANOIN [Suspect]
     Active Substance: TRIHEPTANOIN
     Indication: Very long-chain acyl-coenzyme A dehydrogenase deficiency
     Dosage: 55 MILLILITER
     Route: 048
     Dates: start: 20210112, end: 20231130
  2. TRIHEPTANOIN [Suspect]
     Active Substance: TRIHEPTANOIN
     Dosage: 60 MILLILITER, QID
     Route: 048
     Dates: start: 20231201, end: 20231215
  3. TRIHEPTANOIN [Suspect]
     Active Substance: TRIHEPTANOIN
     Dosage: 55 MILLILITER, QID
     Route: 048
     Dates: start: 20231215
  4. TRIHEPTANOIN [Suspect]
     Active Substance: TRIHEPTANOIN
     Dosage: 55 MILLILITER, DIVIDED INTO FOUR OR SIX DIVIDED DOSES
     Route: 048
  5. NEBIVOLOL HYDROCHLORIDE [Concomitant]
     Active Substance: NEBIVOLOL HYDROCHLORIDE
     Indication: Hypertension
     Dosage: 5 MILLIGRAM, QD (AFTER COVID-19 INFECTION)
     Dates: start: 20220221
  6. IRBESARTAN [Concomitant]
     Active Substance: IRBESARTAN
     Indication: Hypertension
     Dosage: 150 MILLIGRAM, QD (AFTER COVID-19 INFECTION)
     Dates: start: 20220221
  7. PANTO A [Concomitant]
     Active Substance: ACETAMINOPHEN\CHLORPHENIRAMINE MALEATE\GUAIFENESIN
     Indication: Gastrooesophageal reflux disease
     Dosage: 40 MILLIGRAM, QD

REACTIONS (2)
  - Cholelithiasis [Recovering/Resolving]
  - Rhabdomyolysis [Recovered/Resolved]

NARRATIVE: CASE EVENT DATE: 20231201
